FAERS Safety Report 15034047 (Version 1)
Quarter: 2018Q2

REPORT INFORMATION
  Report Type: Spontaneous
  Country: US (occurrence: US)
  Receive Date: 20180620
  Receipt Date: 20180620
  Transmission Date: 20180711
  Serious: No
  Sender: FDA-Public Use
  Company Number: US-TEVA-803465ACC

PATIENT
  Age: 30 Year
  Sex: Female

DRUGS (1)
  1. ANASTROZOLE. [Suspect]
     Active Substance: ANASTROZOLE
     Indication: RESPIRATORY TRACT INFECTION
     Dosage: 4 DOSAGE FORMS DAILY;
     Route: 048
     Dates: start: 20170628, end: 20170701

REACTIONS (5)
  - Gastrointestinal disorder [Recovered/Resolved]
  - Drug dispensing error [Unknown]
  - Anxiety [Not Recovered/Not Resolved]
  - Headache [Recovered/Resolved]
  - Adverse event [Unknown]

NARRATIVE: CASE EVENT DATE: 20170628
